FAERS Safety Report 10010877 (Version 2)
Quarter: 2014Q1

REPORT INFORMATION
  Report Type: Spontaneous
  Country: US (occurrence: US)
  Receive Date: 20140314
  Receipt Date: 20140314
  Transmission Date: 20141002
  Serious: Yes (Other)
  Sender: FDA-Public Use
  Company Number: US-PERRIGO-14US001359

PATIENT
  Age: 16 Year
  Sex: Female
  Weight: 54.42 kg

DRUGS (1)
  1. ASPIRIN 81MG [Suspect]
     Indication: ABDOMINAL PAIN UPPER
     Dosage: 162 MG, SINGLE
     Route: 048
     Dates: start: 20140206, end: 20140206

REACTIONS (2)
  - Vomiting [Recovered/Resolved]
  - Underdose [Recovered/Resolved]
